FAERS Safety Report 21447261 (Version 2)
Quarter: 2022Q4

REPORT INFORMATION
  Report Type: Report from Study
  Country: BR (occurrence: BR)
  Receive Date: 20221012
  Receipt Date: 20221018
  Transmission Date: 20230113
  Serious: Yes (Other)
  Sender: FDA-Public Use
  Company Number: BR-JNJFOC-20221013162

PATIENT
  Age: 50 Year
  Sex: Female
  Weight: 63 kg

DRUGS (2)
  1. JANSSEN COVID-19 VACCINE [Suspect]
     Active Substance: AD26.COV2.S
     Indication: COVID-19 prophylaxis
     Dosage: DOSE 2 (FOURTH)
     Route: 065
  2. REMICADE [Suspect]
     Active Substance: INFLIXIMAB
     Indication: Rheumatoid arthritis
     Dosage: ADMINISTRATION 8 WEEKS
     Route: 042
     Dates: start: 20130424

REACTIONS (10)
  - Thrombosis [Not Recovered/Not Resolved]
  - Cerebrovascular accident [Unknown]
  - Chikungunya virus infection [Unknown]
  - Dengue fever [Unknown]
  - Pruritus [Unknown]
  - Suspected COVID-19 [Unknown]
  - Joint swelling [Unknown]
  - Joint swelling [Unknown]
  - Off label use [Unknown]
  - COVID-19 immunisation [Unknown]

NARRATIVE: CASE EVENT DATE: 20220701
